FAERS Safety Report 4909628-3 (Version None)
Quarter: 2006Q1

REPORT INFORMATION
  Report Type: 
  Country: None (occurrence: None)
  Receive Date: 20060213
  Receipt Date: 20050713
  Transmission Date: 20060701
  Serious: Yes (Hospitalization, Disabling)
  Sender: FDA-Public Use
  Company Number: US-MERCK-0507USA01758

PATIENT
  Age: 50 Year
  Sex: Male
  Weight: 123 kg

DRUGS (1)
  1. VIOXX [Suspect]
     Route: 048
     Dates: start: 20000201, end: 20011001

REACTIONS (16)
  - ABDOMINAL PAIN UPPER [None]
  - ANGINA PECTORIS [None]
  - ARTHRITIS [None]
  - BENIGN PROSTATIC HYPERPLASIA [None]
  - CHEST WALL CYST [None]
  - COLONIC POLYP [None]
  - CORONARY ARTERY DISEASE [None]
  - DERMATITIS [None]
  - ERECTILE DYSFUNCTION [None]
  - HAND FRACTURE [None]
  - HELICOBACTER INFECTION [None]
  - HYPERCHOLESTEROLAEMIA [None]
  - MUSCULOSKELETAL CHEST PAIN [None]
  - SEASONAL ALLERGY [None]
  - STOMACH DISCOMFORT [None]
  - TINNITUS [None]
